FAERS Safety Report 6132222-6 (Version None)
Quarter: 2009Q1

REPORT INFORMATION
  Report Type: 
  Country: None (occurrence: None)
  Receive Date: 20090319
  Receipt Date: 20081003
  Transmission Date: 20090719
  Serious: Yes (Hospitalization)
  Sender: FDA-Public Use
  Company Number: 2008-RO-00102RO

PATIENT
  Sex: Female

DRUGS (2)
  1. MEGESTROL ACETATE [Suspect]
     Indication: DECREASED APPETITE
     Dosage: 15 ML : 20 ML
     Dates: end: 20080901
  2. CHEMOTHERAPY (CHEMOTHERAPEUTICS NOS) [Concomitant]

REACTIONS (4)
  - DRUG INEFFECTIVE [None]
  - INFECTION [None]
  - PRODUCT QUALITY ISSUE [None]
  - PYREXIA [None]
